FAERS Safety Report 16797467 (Version 2)
Quarter: 2020Q2

REPORT INFORMATION
  Report Type: Spontaneous
  Country: US (occurrence: US)
  Receive Date: 20190912
  Receipt Date: 20200605
  Transmission Date: 20200713
  Serious: Yes (Death, Hospitalization, Other)
  Sender: FDA-Public Use
  Company Number: US-009507513-1909USA004025

PATIENT
  Sex: Female
  Weight: 90.7 kg

DRUGS (5)
  1. JANUVIA [Suspect]
     Active Substance: SITAGLIPTIN PHOSPHATE
     Indication: TYPE 2 DIABETES MELLITUS
     Dosage: 50 MILLIGRAM, QD
     Route: 048
     Dates: start: 20160211, end: 20161007
  2. DIOVAN [Concomitant]
     Active Substance: VALSARTAN
     Dosage: 320 MILLIGRAM, TID
  3. JANUVIA [Suspect]
     Active Substance: SITAGLIPTIN PHOSPHATE
     Dosage: 25 MILLIGRAM, QD
     Dates: start: 20161005, end: 201709
  4. VICTOZA [Concomitant]
     Active Substance: LIRAGLUTIDE
  5. GLIPIZIDE. [Concomitant]
     Active Substance: GLIPIZIDE
     Dosage: 10 MILLIGRAM
     Dates: start: 2016

REACTIONS (26)
  - Renal cancer [Unknown]
  - Hypertension [Unknown]
  - Musculoskeletal pain [Unknown]
  - Musculoskeletal pain [Unknown]
  - Dementia [Unknown]
  - Urinary tract infection fungal [Unknown]
  - Cerebrovascular accident [Unknown]
  - Hypertensive heart disease [Unknown]
  - Anaemia of chronic disease [Unknown]
  - Abdominal lymphadenopathy [Unknown]
  - Abdominal hernia [Unknown]
  - Peripheral vascular disorder [Unknown]
  - Senile osteoporosis [Unknown]
  - Adrenal mass [Unknown]
  - Pancreatic carcinoma [Fatal]
  - Hypovolaemia [Unknown]
  - Vomiting [Unknown]
  - Nausea [Unknown]
  - Glycosylated haemoglobin increased [Unknown]
  - Metastatic gastric cancer [Unknown]
  - Hemiparesis [Unknown]
  - Localised oedema [Unknown]
  - Vitamin D deficiency [Unknown]
  - Nodule [Unknown]
  - Malignant neoplasm progression [Unknown]
  - Hiatus hernia [Unknown]

NARRATIVE: CASE EVENT DATE: 20160406
